FAERS Safety Report 9690267 (Version 1)
Quarter: 2013Q4

REPORT INFORMATION
  Report Type: Spontaneous
  Country: US (occurrence: None)
  Receive Date: 20131114
  Receipt Date: 20131114
  Transmission Date: 20140711
  Serious: Yes (Hospitalization)
  Sender: FDA-Public Use
  Company Number: None

PATIENT
  Age: 64 Year
  Sex: Male
  Weight: 80.74 kg

DRUGS (3)
  1. ALBUTEROL SULFATE [Suspect]
     Indication: CHRONIC OBSTRUCTIVE PULMONARY DISEASE
     Dates: start: 20131001, end: 20131025
  2. ALBUTEROL SULFATE [Suspect]
     Indication: ASTHMA
     Dates: start: 20131001, end: 20131025
  3. ALBUTEROL SULFATE [Suspect]
     Indication: EMPHYSEMA
     Dates: start: 20131001, end: 20131025

REACTIONS (2)
  - Dyspnoea [None]
  - Poor quality drug administered [None]
